FAERS Safety Report 12293549 (Version 1)
Quarter: 2016Q2

REPORT INFORMATION
  Report Type: Spontaneous
  Country: AT (occurrence: AT)
  Receive Date: 20160421
  Receipt Date: 20160421
  Transmission Date: 20160815
  Serious: Yes (Hospitalization)
  Sender: FDA-Public Use
  Company Number: AT-ABBVIE-16P-009-1601696-00

PATIENT
  Sex: Male

DRUGS (1)
  1. DUODOPA [Suspect]
     Active Substance: CARBIDOPA\LEVODOPA
     Indication: PARKINSON^S DISEASE
     Dosage: 24 HOUR THERAPY:MD: 3.0 ML, CR: 2.5 ML/H, ED: 1.4 ML
     Route: 065
     Dates: start: 20081211

REACTIONS (2)
  - Device issue [Unknown]
  - Device dislocation [Recovered/Resolved]
